FAERS Safety Report 9247356 (Version 1)
Quarter: 2013Q2

REPORT INFORMATION
  Report Type: Spontaneous
  Country: BR (occurrence: BR)
  Receive Date: 20130423
  Receipt Date: 20130423
  Transmission Date: 20140414
  Serious: Yes (Other)
  Sender: FDA-Public Use
  Company Number: BR-AMGEN-BRASP2013027751

PATIENT
  Age: 76 Year
  Sex: Female
  Weight: 57 kg

DRUGS (5)
  1. ENBREL [Suspect]
     Indication: RHEUMATOID ARTHRITIS
     Dosage: 25 MG, 2X/WEEK
     Route: 058
     Dates: start: 20090731
  2. PANTOPRAZOL [Concomitant]
     Indication: GASTRIC DISORDER
     Dosage: UNK (STRENGTH 20 MG)
  3. SYNTHROID [Concomitant]
     Indication: HYPOTHYROIDISM
     Dosage: UNK (STRENGTH 150 MG)
  4. PARACETAMOL [Concomitant]
     Indication: PAIN
     Dosage: UNK (STRENGTH 750MG)
  5. DIPYRONE [Concomitant]
     Indication: PAIN
     Dosage: UNK (STRENGTH 500MG)

REACTIONS (2)
  - Arrhythmia [Unknown]
  - Injection site pain [Unknown]
